FAERS Safety Report 9366541 (Version 1)
Quarter: 2013Q2

REPORT INFORMATION
  Report Type: Spontaneous
  Country: US (occurrence: US)
  Receive Date: 20130625
  Receipt Date: 20130625
  Transmission Date: 20140414
  Serious: No
  Sender: FDA-Public Use
  Company Number: US-MYLANLABS-2013S1009038

PATIENT
  Age: 81 Year
  Sex: Male

DRUGS (6)
  1. ATORVASTATIN CALCIUM TABLETS [Suspect]
     Indication: INFLAMMATION
     Route: 048
     Dates: start: 20121201, end: 201301
  2. ATORVASTATIN CALCIUM TABLETS [Suspect]
     Indication: OFF LABEL USE
     Route: 048
     Dates: start: 20121201, end: 201301
  3. ATORVASTATIN CALCIUM TABLETS [Suspect]
     Indication: INFLAMMATION
     Dosage: PATIENT DECREASED TO DOSE TO 1/2 OF 10MG TABLET ON HIS OWN.
     Route: 048
     Dates: start: 201301, end: 201302
  4. ATORVASTATIN CALCIUM TABLETS [Suspect]
     Indication: OFF LABEL USE
     Dosage: PATIENT DECREASED TO DOSE TO 1/2 OF 10MG TABLET ON HIS OWN.
     Route: 048
     Dates: start: 201301, end: 201302
  5. METOPROLOL [Concomitant]
     Indication: BLOOD PRESSURE
     Route: 048
     Dates: start: 2005
  6. LEVOXYL [Concomitant]
     Indication: THYROID DISORDER

REACTIONS (4)
  - Amnesia [Recovered/Resolved]
  - Muscle spasms [Recovered/Resolved]
  - Arthralgia [Recovering/Resolving]
  - Medication error [Recovered/Resolved]
